FAERS Safety Report 4460217-7 (Version None)
Quarter: 2004Q3

REPORT INFORMATION
  Report Type: 
  Country: None (occurrence: None)
  Receive Date: 20040928
  Receipt Date: 20040202
  Transmission Date: 20050211
  Serious: No
  Sender: FDA-Public Use
  Company Number: US-GLAXOSMITHKLINE-A0496081A

PATIENT
  Age: 73 Year
  Sex: Male

DRUGS (7)
  1. SEREVENT [Suspect]
     Dosage: 1PUFF TWICE PER DAY
     Route: 055
     Dates: start: 20000101
  2. ALBUTEROL [Concomitant]
  3. ATROVENT [Concomitant]
  4. OXYGEN [Concomitant]
  5. HYTRIN [Concomitant]
  6. CAPTOPRIL [Concomitant]
  7. MULTI-VITAMINS [Concomitant]

REACTIONS (1)
  - DRY THROAT [None]
